FAERS Safety Report 7596013-1 (Version None)
Quarter: 2011Q3

REPORT INFORMATION
  Report Type: 
  Country: None (occurrence: None)
  Receive Date: 20110707
  Receipt Date: 20110630
  Transmission Date: 20111222
  Serious: Yes (Hospitalization)
  Sender: FDA-Public Use
  Company Number: PHHO2006US21689

PATIENT
  Sex: Male
  Weight: 89.6 kg

DRUGS (10)
  1. TASIGNA [Suspect]
     Dosage: NO TREATMENT
     Dates: start: 20081223, end: 20090103
  2. TASIGNA [Suspect]
     Dosage: 400 MG, QD
     Route: 048
     Dates: start: 20090104, end: 20090107
  3. TASIGNA [Suspect]
     Indication: CHRONIC MYELOID LEUKAEMIA
     Dosage: 400 MG, BID
     Route: 048
     Dates: start: 20060419, end: 20071216
  4. TASIGNA [Suspect]
     Dosage: 400 MG, QD
     Dates: end: 20081222
  5. TASIGNA [Suspect]
     Dosage: 400 MG, QD
     Route: 048
     Dates: end: 20100607
  6. TASIGNA [Suspect]
     Dosage: NO TREATMENT RECEIVED
     Dates: start: 20100822, end: 20100831
  7. TASIGNA [Suspect]
     Dosage: NO TREATMENT
     Dates: start: 20071217
  8. TASIGNA [Suspect]
     Dosage: NO TREATMENT RECEIVED
     Dates: start: 20100608, end: 20100617
  9. TASIGNA [Suspect]
     Dosage: 400 MG, BID
     Route: 048
     Dates: start: 20100618, end: 20100821
  10. TASIGNA [Suspect]
     Dosage: 400 MG, BID
     Route: 048
     Dates: start: 20100901

REACTIONS (7)
  - PNEUMONIA [None]
  - DYSPNOEA [None]
  - PYREXIA [None]
  - VOMITING [None]
  - LUNG INFILTRATION [None]
  - PNEUMONITIS [None]
  - FATIGUE [None]
